FAERS Safety Report 5507350-6 (Version None)
Quarter: 2007Q4

REPORT INFORMATION
  Report Type: 
  Country: None (occurrence: None)
  Receive Date: 20071030
  Receipt Date: 20070703
  Transmission Date: 20080405
  Serious: No
  Sender: FDA-Public Use
  Company Number: A-US2007-16611

PATIENT
  Age: 32 Year
  Sex: Female

DRUGS (1)
  1. VENTAVIS [Suspect]
     Indication: PULMONARY HYPERTENSION
     Dosage: 2.5 UG, 6-9 X DAY, RESPIRATORY
     Route: 055
     Dates: start: 20070601

REACTIONS (4)
  - ANOREXIA [None]
  - FATIGUE [None]
  - HEADACHE [None]
  - INFLUENZA [None]
